FAERS Safety Report 8839801 (Version 1)
Quarter: 2012Q4

REPORT INFORMATION
  Report Type: 
  Country: US (occurrence: US)
  Receive Date: 20121015
  Receipt Date: 20121015
  Transmission Date: 20130627
  Serious: No
  Sender: FDA-Public Use
  Company Number: US-BRISTOL-MYERS SQUIBB COMPANY-16548596

PATIENT
  Age: 55 Year
  Sex: Female

DRUGS (5)
  1. KENALOG-40 INJ [Suspect]
     Indication: ROTATOR CUFF SYNDROME
     Dosage: 2cc mixed with 4cc lidocaine,injection in Right shoulder
     Dates: start: 20120329
  2. LIDOCAINE [Suspect]
     Dosage: 4cc
  3. LISINOPRIL [Concomitant]
  4. PREMARIN [Concomitant]
  5. NAPROXEN [Concomitant]

REACTIONS (1)
  - Postmenopausal haemorrhage [Unknown]
